FAERS Safety Report 6521168-7 (Version None)
Quarter: 2009Q4

REPORT INFORMATION
  Report Type: 
  Country: None (occurrence: None)
  Receive Date: 20091222
  Receipt Date: 20091214
  Transmission Date: 20100525
  Serious: Yes (Death)
  Sender: FDA-Public Use
  Company Number: 2009US004444

PATIENT
  Age: 51 Year
  Sex: Female

DRUGS (1)
  1. PROGRAF [Suspect]
     Indication: TRANSPLANT
     Dosage: 4 MG, UID/QD, ORAL
     Route: 048

REACTIONS (2)
  - LUNG NEOPLASM MALIGNANT [None]
  - STAPHYLOCOCCAL INFECTION [None]
